FAERS Safety Report 25318861 (Version 2)
Quarter: 2025Q4

REPORT INFORMATION
  Report Type: Spontaneous
  Country: EU (occurrence: EU)
  Receive Date: 20250515
  Receipt Date: 20251125
  Transmission Date: 20260118
  Serious: Yes (Other)
  Sender: RANBAXY
  Company Number: EU-AFSSAPS-TO2025000064

PATIENT
  Age: 85 Year
  Sex: Female
  Weight: 56 kg

DRUGS (7)
  1. LANSOPRAZOLE [Suspect]
     Active Substance: LANSOPRAZOLE
     Indication: Abdominal pain upper
     Dosage: 15 MILLIGRAM, DAILY
     Route: 048
     Dates: start: 20241214
  2. SULFAMETHOXAZOLE [Suspect]
     Active Substance: SULFAMETHOXAZOLE
     Indication: Osteitis
     Dosage: 800 MILLIGRAM, DAILY
     Route: 048
     Dates: start: 20241015
  3. TRIMETHOPRIM [Suspect]
     Active Substance: TRIMETHOPRIM
     Indication: Osteitis
     Dosage: 800 MILLIGRAM, DAILY
     Route: 048
     Dates: start: 20241015
  4. AMOXICILLIN [Suspect]
     Active Substance: AMOXICILLIN
     Indication: Osteitis
     Dosage: AMOXICILLIN/CLAVULANIC ACID 1G/125MG CNS, 3/DAY
     Route: 048
     Dates: start: 20241023, end: 20250101
  5. AMOXICILLIN [Suspect]
     Active Substance: AMOXICILLIN
     Dosage: 1G 3/DAY
     Route: 048
     Dates: start: 20241023, end: 20250101
  6. CLAVULANIC ACID [Suspect]
     Active Substance: CLAVULANIC ACID
     Indication: Osteitis
     Dosage: AMOXICILLIN/CLAVULANIC ACID 1G/125MG CNS, 3/DAY
     Route: 048
     Dates: start: 20241023, end: 20250101
  7. VORICONAZOLE [Suspect]
     Active Substance: VORICONAZOLE
     Indication: Osteitis
     Dosage: 200MG 2/DAY
     Route: 048
     Dates: start: 20241030

REACTIONS (1)
  - Cholestasis [Not Recovered/Not Resolved]

NARRATIVE: CASE EVENT DATE: 20241231
